FAERS Safety Report 6709023-0 (Version None)
Quarter: 2010Q2

REPORT INFORMATION
  Report Type: 
  Country: None (occurrence: None)
  Receive Date: 20100504
  Receipt Date: 20100429
  Transmission Date: 20101027
  Serious: Yes (Hospitalization)
  Sender: FDA-Public Use
  Company Number: DK-JNJFOC-20040705057

PATIENT
  Age: 6 Year
  Sex: Male

DRUGS (3)
  1. ACETAMINOPHEN [Suspect]
     Indication: ANALGESIC THERAPY
  2. ACETAMINOPHEN [Suspect]
     Dosage: GIVEN ON A DAILY BASIS FOR SEVERAL MONTHS
  3. ACETAMINOPHEN W/ CODEINE [Suspect]
     Indication: DRUG USE FOR UNKNOWN INDICATION
     Dosage: UNKNOWN

REACTIONS (1)
  - TOXIC EPIDERMAL NECROLYSIS [None]
